FAERS Safety Report 5151426-2 (Version None)
Quarter: 2006Q4

REPORT INFORMATION
  Report Type: 
  Country: None (occurrence: None)
  Receive Date: 20061115
  Receipt Date: 20051130
  Transmission Date: 20070319
  Serious: Yes (Life-Threatening, Hospitalization)
  Sender: FDA-Public Use
  Company Number: PHHO2005DE18896

PATIENT
  Age: 50 Year
  Sex: Male
  Weight: 64.6 kg

DRUGS (5)
  1. URBASON [Concomitant]
     Indication: RENAL TRANSPLANT
     Dosage: 250 MG DAILY DOSE
     Route: 042
  2. CERTICAN [Suspect]
     Dosage: NO TREATMENT
  3. HEPARIN [Concomitant]
     Dates: start: 20051127, end: 20051128
  4. MYFORTIC [Suspect]
     Indication: RENAL TRANSPLANT
     Dosage: 360 MG, BID
     Route: 048
  5. NEORAL [Suspect]
     Indication: RENAL TRANSPLANT
     Dosage: 300 MG DAILY
     Dates: start: 20051127

REACTIONS (7)
  - HAEMATOMA EVACUATION [None]
  - HAEMOGLOBIN DECREASED [None]
  - HAEMORRHAGE [None]
  - PERINEAL HAEMATOMA [None]
  - POST PROCEDURAL HAEMORRHAGE [None]
  - SUTURE INSERTION [None]
  - WOUND DEHISCENCE [None]
